FAERS Safety Report 8114036-0 (Version None)
Quarter: 2012Q1

REPORT INFORMATION
  Report Type: 
  Country: None (occurrence: None)
  Receive Date: 20120203
  Receipt Date: 20120126
  Transmission Date: 20120608
  Serious: Yes (Other)
  Sender: FDA-Public Use
  Company Number: DE-ASTRAZENECA-2012SE06230

PATIENT
  Sex: Male

DRUGS (1)
  1. SEROQUEL XR [Suspect]
     Route: 048
     Dates: start: 20120116

REACTIONS (3)
  - TROPONIN T INCREASED [None]
  - ELECTROCARDIOGRAM T WAVE INVERSION [None]
  - THROMBOCYTOPENIA [None]
